FAERS Safety Report 9044113 (Version 1)
Quarter: 2013Q1

REPORT INFORMATION
  Report Type: Spontaneous
  Country: IT (occurrence: IT)
  Receive Date: 20130130
  Receipt Date: 20130130
  Transmission Date: 20140127
  Serious: Yes (Hospitalization)
  Sender: FDA-Public Use
  Company Number: IT-ELI_LILLY_AND_COMPANY-IT201301004605

PATIENT
  Age: 75 Year
  Sex: Male

DRUGS (2)
  1. ALIMTA [Suspect]
     Indication: LUNG ADENOCARCINOMA
     Dosage: 1000 MG, UNKNOWN
     Route: 042
     Dates: start: 20121228, end: 20121228
  2. CISPLATIN [Concomitant]
     Dosage: 75 MG, UNKNOWN
     Route: 042

REACTIONS (1)
  - Acute myocardial infarction [Recovered/Resolved]
